APPROVED DRUG PRODUCT: SODIUM NITROPRUSSIDE
Active Ingredient: SODIUM NITROPRUSSIDE
Strength: 25MG/ML
Dosage Form/Route: INJECTABLE;INJECTION
Application: A073465 | Product #001
Applicant: TEVA PARENTERAL MEDICINES INC
Approved: Mar 30, 1992 | RLD: No | RS: No | Type: DISCN